FAERS Safety Report 5341213-4 (Version None)
Quarter: 2007Q2

REPORT INFORMATION
  Report Type: 
  Country: None (occurrence: None)
  Receive Date: 20070405
  Receipt Date: 20061127
  Transmission Date: 20071010
  Serious: No
  Sender: FDA-Public Use
  Company Number: US200611004895

PATIENT
  Age: 42 Year
  Sex: Female

DRUGS (2)
  1. CYMBALTA [Suspect]
     Indication: DEPRESSION
     Dosage: SEE IMAGE
  2. WELLBUTRIN [Concomitant]

REACTIONS (2)
  - PLATELET COUNT INCREASED [None]
  - RED BLOOD CELL ABNORMALITY [None]
